FAERS Safety Report 9514384 (Version 3)
Quarter: 2013Q4

REPORT INFORMATION
  Report Type: Spontaneous
  Country: US (occurrence: US)
  Receive Date: 20130911
  Receipt Date: 20131128
  Transmission Date: 20140711
  Serious: Yes (Hospitalization)
  Sender: FDA-Public Use
  Company Number: US-BIOGENIDEC-2013BI085108

PATIENT
  Sex: Female

DRUGS (3)
  1. AVONEX [Suspect]
     Indication: MULTIPLE SCLEROSIS
     Route: 030
     Dates: start: 20020404
  2. AVONEX [Suspect]
     Indication: MULTIPLE SCLEROSIS
     Route: 030
     Dates: start: 20130228
  3. AVONEX [Suspect]
     Indication: MULTIPLE SCLEROSIS
     Route: 030
     Dates: start: 20130618, end: 20130731

REACTIONS (8)
  - Transient ischaemic attack [Unknown]
  - Hypertension [Unknown]
  - Overdose [Recovered/Resolved]
  - Cardiac valve disease [Not Recovered/Not Resolved]
  - Abasia [Unknown]
  - Dysarthria [Recovered/Resolved]
  - Unresponsive to stimuli [Recovered/Resolved]
  - Cardiac disorder [Unknown]
